FAERS Safety Report 8486938 (Version 3)
Quarter: 2015Q1

REPORT INFORMATION
  Report Type: Report from Study
  Country: US (occurrence: US)
  Receive Date: 20120402
  Receipt Date: 20150331
  Transmission Date: 20150721
  Serious: Yes (Death)
  Sender: FDA-Public Use
  Company Number: US-ROCHE-1054891

PATIENT
  Sex: Male

DRUGS (16)
  1. PRILOSEC [Concomitant]
     Active Substance: OMEPRAZOLE MAGNESIUM
  2. RESTORIL (UNITED STATES) [Concomitant]
  3. ATIVAN [Concomitant]
     Active Substance: LORAZEPAM
     Route: 065
  4. ALDACTONE (UNITED STATES) [Concomitant]
     Dosage: TAKE 1 TBLET BY MOUTH DAILY
     Route: 065
  5. LOVENOX [Concomitant]
     Active Substance: ENOXAPARIN SODIUM
     Dosage: 100 MG/ML
     Route: 058
  6. FERROUS SULFATE [Concomitant]
     Active Substance: FERROUS SULFATE\FERROUS SULFATE, DRIED
     Route: 065
  7. XELODA [Suspect]
     Active Substance: CAPECITABINE
     Indication: OESOPHAGEAL CARCINOMA
     Dosage: FOR 14DAYS THEN OFF FOR 7 DAYS
     Route: 065
     Dates: start: 20111112
  8. VICODIN [Concomitant]
     Active Substance: ACETAMINOPHEN\HYDROCODONE BITARTRATE
     Dosage: 5-500 MG
     Route: 065
  9. CORGARD (UNITED STATES) [Concomitant]
     Route: 065
  10. ZOLOFT [Concomitant]
     Active Substance: SERTRALINE HYDROCHLORIDE
     Route: 065
  11. LASIX [Concomitant]
     Active Substance: FUROSEMIDE
     Route: 065
  12. CHRONULAC [Concomitant]
     Active Substance: LACTULOSE
     Dosage: 10GM/15ML
     Route: 065
  13. GLUCOPHAGE [Concomitant]
     Active Substance: METFORMIN HYDROCHLORIDE
     Route: 065
  14. SYNTHROID [Concomitant]
     Active Substance: LEVOTHYROXINE SODIUM
     Route: 065
  15. ZOCOR [Concomitant]
     Active Substance: SIMVASTATIN
     Dosage: TAKE 0.5 TABLETS BY MOUTH AT BEDTIME
     Route: 065
  16. VICODIN [Concomitant]
     Active Substance: ACETAMINOPHEN\HYDROCODONE BITARTRATE
     Route: 058

REACTIONS (5)
  - Death [Fatal]
  - Neuropathy peripheral [Unknown]
  - Fatigue [Unknown]
  - Palmar-plantar erythrodysaesthesia syndrome [Unknown]
  - Mucosal inflammation [Unknown]
